FAERS Safety Report 8355329-1 (Version None)
Quarter: 2012Q2

REPORT INFORMATION
  Report Type: 
  Country: None (occurrence: None)
  Receive Date: 20120511
  Receipt Date: 20110328
  Transmission Date: 20120825
  Serious: No
  Sender: FDA-Public Use
  Company Number: US-TEVA-2011001478

PATIENT
  Sex: Male
  Weight: 97.61 kg

DRUGS (7)
  1. CLONIDINE [Concomitant]
  2. SEROQUEL [Concomitant]
  3. LAMICTAL [Concomitant]
  4. OXCARBAZEPINE [Concomitant]
  5. NUVIGIL [Suspect]
     Indication: ATTENTION DEFICIT/HYPERACTIVITY DISORDER
     Dosage: 150 MILLIGRAM;
     Route: 048
     Dates: start: 20100101, end: 20100101
  6. CLONAZEPAM [Concomitant]
  7. TEMAZEPAM [Concomitant]

REACTIONS (2)
  - INSOMNIA [None]
  - FEELING JITTERY [None]
